FAERS Safety Report 5943737-5 (Version None)
Quarter: 2008Q4

REPORT INFORMATION
  Report Type: 
  Country: None (occurrence: None)
  Receive Date: 20081106
  Receipt Date: 20081028
  Transmission Date: 20090506
  Serious: Yes (Hospitalization, Disabling)
  Sender: FDA-Public Use
  Company Number: NL-PFIZER INC-2008078764

PATIENT
  Sex: Male
  Weight: 92 kg

DRUGS (4)
  1. GENOTROPIN [Suspect]
     Indication: GROWTH HORMONE DEFICIENCY
     Route: 058
     Dates: start: 19950706, end: 20080912
  2. TESTOSTERONE [Concomitant]
     Dates: start: 19930901
  3. HYDROCORTISONE [Concomitant]
     Dosage: DAILY DOSE:24MG
     Route: 048
     Dates: start: 19990812
  4. LEVOTHYROXINE SODIUM [Concomitant]
     Dosage: DAILY DOSE:150MG
     Route: 048
     Dates: start: 19930801

REACTIONS (1)
  - RECTAL CANCER [None]
